FAERS Safety Report 11309295 (Version 1)
Quarter: 2015Q3

REPORT INFORMATION
  Report Type: Spontaneous
  Country: CA (occurrence: CA)
  Receive Date: 20150724
  Receipt Date: 20150724
  Transmission Date: 20151125
  Serious: Yes (Other)
  Sender: FDA-Public Use
  Company Number: CA-009507513-1507CAN011174

PATIENT
  Age: 18 Year
  Sex: Female

DRUGS (2)
  1. IBUPROFEN. [Suspect]
     Active Substance: IBUPROFEN
     Indication: SUICIDE ATTEMPT
     Dosage: 6000 MG, UNKNOWN
  2. DESLORATADINE. [Suspect]
     Active Substance: DESLORATADINE
     Indication: SUICIDE ATTEMPT
     Dosage: 335 MG, UNKNOWN

REACTIONS (2)
  - Intentional overdose [Recovered/Resolved]
  - Electrocardiogram QT prolonged [Recovered/Resolved]
